FAERS Safety Report 8503451-9 (Version None)
Quarter: 2012Q3

REPORT INFORMATION
  Report Type: 
  Country: None (occurrence: None)
  Receive Date: 20120711
  Receipt Date: 20120703
  Transmission Date: 20120928
  Serious: Yes (Hospitalization)
  Sender: FDA-Public Use
  Company Number: US-GLAXOSMITHKLINE-A0914653A

PATIENT
  Age: 57 Year
  Sex: Male

DRUGS (2)
  1. AVANDIA [Suspect]
     Indication: DIABETES MELLITUS
     Dosage: 4MG PER DAY
     Route: 048
     Dates: start: 20050901, end: 20060601
  2. AVANDAMET [Suspect]
     Indication: DIABETES MELLITUS
     Route: 048
     Dates: start: 20040101, end: 20050901

REACTIONS (27)
  - MITRAL VALVE INCOMPETENCE [None]
  - VENTRICULAR TACHYCARDIA [None]
  - CARDIAC FAILURE CONGESTIVE [None]
  - CARDIAC DISORDER [None]
  - TRICUSPID VALVE INCOMPETENCE [None]
  - CARDIOMYOPATHY [None]
  - PNEUMONIA [None]
  - PERICARDIAL EFFUSION [None]
  - ISCHAEMIC CARDIOMYOPATHY [None]
  - VIITH NERVE PARALYSIS [None]
  - CONVULSION [None]
  - RENAL FAILURE [None]
  - ACTIVITIES OF DAILY LIVING IMPAIRED [None]
  - HAEMODYNAMIC INSTABILITY [None]
  - CEREBROVASCULAR ACCIDENT [None]
  - ATRIAL FIBRILLATION [None]
  - TRANSIENT ISCHAEMIC ATTACK [None]
  - ACUTE MYOCARDIAL INFARCTION [None]
  - POST PROCEDURAL COMPLICATION [None]
  - CARDIAC TAMPONADE [None]
  - MYOCARDIAL INFARCTION [None]
  - RESPIRATORY FAILURE [None]
  - HYPERTENSIVE CARDIOMYOPATHY [None]
  - DROOLING [None]
  - HEPATITIS C [None]
  - RENAL FAILURE CHRONIC [None]
  - CORONARY ARTERY OCCLUSION [None]
